FAERS Safety Report 5275528-5 (Version None)
Quarter: 2007Q1

REPORT INFORMATION
  Report Type: 
  Country: None (occurrence: None)
  Receive Date: 20070326
  Receipt Date: 20070314
  Transmission Date: 20070707
  Serious: Yes (Hospitalization, Other)
  Sender: FDA-Public Use
  Company Number: PHBS2007CL00891

PATIENT
  Age: 69 Year
  Sex: Female

DRUGS (2)
  1. INSULIN [Concomitant]
     Indication: DIABETES MELLITUS
  2. MIACALCIN [Suspect]
     Indication: OSTEOPOROSIS
     Dosage: 1 PUFF/DAY
     Route: 045
     Dates: start: 20050901

REACTIONS (3)
  - ARTHRALGIA [None]
  - GAIT DISTURBANCE [None]
  - KNEE ARTHROPLASTY [None]
